FAERS Safety Report 4340255-5 (Version None)
Quarter: 2004Q2

REPORT INFORMATION
  Report Type: 
  Country: None (occurrence: None)
  Receive Date: 20040414
  Receipt Date: 20040329
  Transmission Date: 20050107
  Serious: Yes (Other)
  Sender: FDA-Public Use
  Company Number: A0504860A

PATIENT
  Age: 42 Year
  Sex: Female
  Weight: 61.281 kg

DRUGS (5)
  1. NICODERM CQ [Suspect]
     Dosage: TRANSDERMAL
     Route: 062
     Dates: start: 20040327, end: 20040329
  2. NICORETTE [Suspect]
     Dosage: 4 MG/ FOUR TIMES PER DAY/TRANSB
     Dates: start: 20031001, end: 20040326
  3. ZONISAMIDE [Concomitant]
  4. LAMOTRIGINE [Concomitant]
  5. LORAZEPAM [Concomitant]

REACTIONS (2)
  - COMPLEX PARTIAL SEIZURES [None]
  - CONDITION AGGRAVATED [None]
